FAERS Safety Report 21401494 (Version 1)
Quarter: 2022Q4

REPORT INFORMATION
  Report Type: Spontaneous
  Country: US (occurrence: US)
  Receive Date: 20221003
  Receipt Date: 20221003
  Transmission Date: 20230112
  Serious: Yes (Death, Other)
  Sender: FDA-Public Use
  Company Number: US-SUN PHARMACEUTICAL INDUSTRIES LTD-2022R1-356974

PATIENT
  Age: 42 Year
  Sex: Female

DRUGS (5)
  1. AMPHOTERICIN B [Suspect]
     Active Substance: AMPHOTERICIN B
     Indication: Antifungal treatment
     Dosage: UNK
     Route: 065
  2. VANCOMYCIN HYDROCHLORIDE [Suspect]
     Active Substance: VANCOMYCIN HYDROCHLORIDE
     Indication: Proteus infection
     Dosage: UNK
     Route: 065
  3. CLINDAMYCIN [Suspect]
     Active Substance: CLINDAMYCIN
     Indication: Proteus infection
     Dosage: UNK
     Route: 065
  4. MEROPENEM [Suspect]
     Active Substance: MEROPENEM
     Indication: Proteus infection
     Dosage: UNK
     Route: 065
  5. ANIDULAFUNGIN [Suspect]
     Active Substance: ANIDULAFUNGIN
     Indication: Antifungal treatment
     Route: 065

REACTIONS (1)
  - Condition aggravated [Fatal]
